FAERS Safety Report 6041988-5 (Version None)
Quarter: 2009Q1

REPORT INFORMATION
  Report Type: 
  Country: None (occurrence: None)
  Receive Date: 20090116
  Receipt Date: 20090113
  Transmission Date: 20090719
  Serious: Yes (Hospitalization, Other)
  Sender: FDA-Public Use
  Company Number: JP-MERCK-0901USA01510

PATIENT
  Age: 14 Year
  Sex: Male
  Weight: 35 kg

DRUGS (7)
  1. FOSAMAX [Suspect]
     Indication: HYPERCALCAEMIA
     Route: 048
     Dates: start: 20050614, end: 20050627
  2. FOSAMAX [Suspect]
     Route: 048
     Dates: start: 20050801, end: 20050825
  3. FOSAMAX [Suspect]
     Route: 048
     Dates: start: 20050826, end: 20051222
  4. FOSAMAX [Suspect]
     Route: 048
     Dates: start: 20051223, end: 20060119
  5. GENOTROPIN [Suspect]
     Indication: BODY HEIGHT BELOW NORMAL
     Route: 058
     Dates: start: 20050831, end: 20061019
  6. GENOTROPIN [Suspect]
     Route: 058
     Dates: start: 20061020, end: 20061214
  7. ELCITONIN [Suspect]
     Indication: HYPERCALCAEMIA
     Route: 030
     Dates: start: 20050608, end: 20050610

REACTIONS (1)
  - SCOLIOSIS [None]
